FAERS Safety Report 18059318 (Version 3)
Quarter: 2021Q3

REPORT INFORMATION
  Report Type: Spontaneous
  Country: US (occurrence: US)
  Receive Date: 20200723
  Receipt Date: 20210812
  Transmission Date: 20211014
  Serious: Yes (Hospitalization, Other)
  Sender: FDA-Public Use
  Company Number: US-TEVA-2020-US-1804669

PATIENT
  Age: 69 Year
  Sex: Male

DRUGS (4)
  1. DIOVAN HCT [Suspect]
     Active Substance: HYDROCHLOROTHIAZIDE\VALSARTAN
     Indication: HYPERTENSION
     Dosage: 80?12.5MG
     Route: 048
     Dates: start: 20130227, end: 20130718
  2. VALSARTAN W/HYDROCHLOROTHIAZIDE ALEMBIC [Suspect]
     Active Substance: HYDROCHLOROTHIAZIDE\VALSARTAN
     Indication: HYPERTENSION
     Dosage: 160?25MG
     Route: 048
     Dates: start: 20180430, end: 20200116
  3. VALSARTAN W/HYDROCHLOROTHIAZIDE TEVA [Suspect]
     Active Substance: HYDROCHLOROTHIAZIDE\VALSARTAN
     Indication: HYPERTENSION
     Dosage: 160?25MG
     Route: 048
     Dates: start: 20141208, end: 20180509
  4. DIOVAN HCT [Suspect]
     Active Substance: HYDROCHLOROTHIAZIDE\VALSARTAN
     Route: 048
     Dates: start: 20130710, end: 20141212

REACTIONS (3)
  - Epistaxis [Unknown]
  - Transitional cell carcinoma [Unknown]
  - Hypotension [Unknown]

NARRATIVE: CASE EVENT DATE: 2018
